FAERS Safety Report 17145916 (Version 2)
Quarter: 2020Q2

REPORT INFORMATION
  Report Type: Spontaneous
  Country: US (occurrence: US)
  Receive Date: 20191212
  Receipt Date: 20200416
  Transmission Date: 20200713
  Serious: Yes (Other)
  Sender: FDA-Public Use
  Company Number: US-GILEAD-2019-0441946

PATIENT
  Age: 40 Year
  Sex: Male
  Weight: 82.09 kg

DRUGS (1)
  1. TRUVADA [Suspect]
     Active Substance: EMTRICITABINE\TENOFOVIR DISOPROXIL FUMARATE
     Indication: PROPHYLAXIS AGAINST HIV INFECTION
     Dosage: UNK
     Route: 048
     Dates: start: 2012, end: 20190923

REACTIONS (7)
  - Pain [Unknown]
  - Emotional distress [Unknown]
  - Bone disorder [Unknown]
  - Anxiety [Unknown]
  - Anhedonia [Unknown]
  - Lower limb fracture [Recovered/Resolved]
  - Economic problem [Unknown]

NARRATIVE: CASE EVENT DATE: 20150829
